FAERS Safety Report 12205787 (Version 1)
Quarter: 2016Q1

REPORT INFORMATION
  Report Type: Report from Study
  Country: US (occurrence: US)
  Receive Date: 20160323
  Receipt Date: 20160323
  Transmission Date: 20160526
  Serious: Yes (Death)
  Sender: FDA-Public Use
  Company Number: US-APOPHARMA-2016AP007254

PATIENT
  Age: 60 Year
  Sex: Male
  Weight: 134 kg

DRUGS (3)
  1. PROTONIX [Concomitant]
     Active Substance: PANTOPRAZOLE SODIUM
     Indication: PRODUCT USED FOR UNKNOWN INDICATION
     Route: 065
  2. DEFERIPRONE [Suspect]
     Active Substance: DEFERIPRONE
     Indication: HAEMOCHROMATOSIS
  3. DEFERIPRONE [Suspect]
     Active Substance: DEFERIPRONE
     Indication: DEFICIENCY ANAEMIA
     Dosage: 4 MG/KG, BID
     Route: 048
     Dates: start: 20140910

REACTIONS (1)
  - Myocardial infarction [Fatal]

NARRATIVE: CASE EVENT DATE: 201603
